FAERS Safety Report 11668579 (Version 2)
Quarter: 2015Q4

REPORT INFORMATION
  Report Type: Spontaneous
  Country: US (occurrence: US)
  Receive Date: 20151027
  Receipt Date: 20151218
  Transmission Date: 20160304
  Serious: Yes (Other)
  Sender: FDA-Public Use
  Company Number: US-GLAXOSMITHKLINE-US2015GSK150603

PATIENT
  Sex: Female

DRUGS (1)
  1. ADVAIR HFA [Suspect]
     Active Substance: FLUTICASONE PROPIONATE\SALMETEROL XINAFOATE
     Indication: PULMONARY EMBOLISM
     Dosage: UNK
     Route: 055

REACTIONS (3)
  - Brain injury [Unknown]
  - Deafness [Unknown]
  - Fall [Unknown]

NARRATIVE: CASE EVENT DATE: 2015
